FAERS Safety Report 7771974-6 (Version None)
Quarter: 2011Q3

REPORT INFORMATION
  Report Type: 
  Country: None (occurrence: None)
  Receive Date: 20110922
  Receipt Date: 20101014
  Transmission Date: 20111222
  Serious: No
  Sender: FDA-Public Use
  Company Number: US-ASTRAZENECA-2010SE48721

PATIENT
  Sex: Male

DRUGS (6)
  1. ENBREL [Concomitant]
  2. SEROQUEL [Suspect]
     Indication: BIPOLAR DISORDER
     Route: 048
     Dates: start: 20040101
  3. LAMICTAL [Concomitant]
  4. HYDROCHLOROTHIAZIDE [Concomitant]
  5. VYTORIN [Concomitant]
     Dosage: 10/20 DAILY
  6. LEVOXYL [Concomitant]

REACTIONS (3)
  - DRY MOUTH [None]
  - DYSPHAGIA [None]
  - OROPHARYNGEAL PAIN [None]
